FAERS Safety Report 5055764-3 (Version None)
Quarter: 2006Q3

REPORT INFORMATION
  Report Type: 
  Country: None (occurrence: None)
  Receive Date: 20060714
  Receipt Date: 20060711
  Transmission Date: 20061208
  Serious: Yes (Other)
  Sender: FDA-Public Use
  Company Number: 17453

PATIENT
  Age: 34 Year
  Sex: Male
  Weight: 88.4514 kg

DRUGS (1)
  1. IBUPROFEN [Suspect]
     Indication: DENTAL DISCOMFORT
     Dosage: 400MG/ORAL
     Route: 048
     Dates: start: 20060205, end: 20060301

REACTIONS (3)
  - PRURITUS [None]
  - SKIN BURNING SENSATION [None]
  - URTICARIA [None]
